FAERS Safety Report 18802111 (Version 3)
Quarter: 2021Q1

REPORT INFORMATION
  Report Type: Report from Study
  Country: ES (occurrence: ES)
  Receive Date: 20210128
  Receipt Date: 20210304
  Transmission Date: 20210419
  Serious: Yes (Hospitalization)
  Sender: FDA-Public Use
  Company Number: ES-ROCHE-2755233

PATIENT
  Age: 68 Year
  Sex: Male
  Weight: 87 kg

DRUGS (11)
  1. ENALAPRIL [Concomitant]
     Active Substance: ENALAPRIL
     Indication: HYPERTENSION
     Route: 048
  2. ATEZOLIZUMAB. [Suspect]
     Active Substance: ATEZOLIZUMAB
     Indication: PANCREATIC CARCINOMA METASTATIC
     Dosage: DOSE LAST STUDY DRUG ADMIN PRIOR AE IS 840 MG?START DATE OF MOST RECENT DOSE OF STUDY DRUG PRIOR TO
     Route: 042
     Dates: start: 20200918
  3. NAB?PACLITAXEL [Suspect]
     Active Substance: PACLITAXEL
     Indication: PANCREATIC CARCINOMA METASTATIC
     Dosage: DOSE OF STUDY DRUG FIRST ADMINISTERED 250.38 MG?DOSE LAST STUDY DRUG ADMIN PRIOR AE IS 274.38 MG?STA
     Route: 042
     Dates: start: 20200918
  4. HIDROCLOROTIAZIDE [Concomitant]
     Active Substance: HYDROCHLOROTHIAZIDE
     Indication: HYPERTENSION
     Route: 048
  5. MTIG 7192A [Suspect]
     Active Substance: TIRAGOLUMAB
     Indication: PANCREATIC CARCINOMA METASTATIC
     Dosage: DOSE LAST STUDY DRUG ADMIN PRIOR AE IS 420 MG?START DATE OF MOST RECENT DOSE OF STUDY DRUG PRIOR TO
     Route: 042
     Dates: start: 20200918
  6. OMEPRAZOL [Concomitant]
     Active Substance: OMEPRAZOLE
     Indication: HIATUS HERNIA
     Route: 048
  7. ONDANSETRON [Concomitant]
     Active Substance: ONDANSETRON
     Dosage: POST MEDICATION PROPHYLAXIS
     Route: 048
     Dates: start: 20200918
  8. GEMCITABINE. [Suspect]
     Active Substance: GEMCITABINE
     Indication: PANCREATIC CARCINOMA METASTATIC
     Dosage: DOSE OF STUDY DRUG FIRST ADMINISTERED 2003 MG?DOSE LAST STUDY DRUG ADMIN PRIOR AE IS 1602.4 MG?START
     Route: 042
     Dates: start: 20200918
  9. PARACETAMOL [Concomitant]
     Active Substance: ACETAMINOPHEN
     Indication: PAIN
     Route: 048
     Dates: start: 20200930
  10. ONDANSETRON [Concomitant]
     Active Substance: ONDANSETRON
     Indication: PREMEDICATION
     Dosage: PROPHYLAXIS
     Route: 042
     Dates: start: 20200918
  11. METOCLOPRAMIDE. [Concomitant]
     Active Substance: METOCLOPRAMIDE
     Dosage: PROPHYAXIS POST MEDICATION
     Route: 048
     Dates: start: 20200918

REACTIONS (1)
  - Myositis [Recovered/Resolved]

NARRATIVE: CASE EVENT DATE: 20210114
